FAERS Safety Report 8187863-1 (Version None)
Quarter: 2012Q1

REPORT INFORMATION
  Report Type: 
  Country: None (occurrence: None)
  Receive Date: 20120302
  Receipt Date: 20120221
  Transmission Date: 20120608
  Serious: Yes (Other)
  Sender: FDA-Public Use
  Company Number: 2012SP009889

PATIENT
  Sex: Female

DRUGS (1)
  1. NUVARING [Suspect]
     Indication: CONTRACEPTION
     Dosage: 1 DF

REACTIONS (3)
  - ABORTION [None]
  - PREGNANCY WITH CONTRACEPTIVE DEVICE [None]
  - MATERNAL DRUGS AFFECTING FOETUS [None]
